FAERS Safety Report 8202099-3 (Version None)
Quarter: 2012Q1

REPORT INFORMATION
  Report Type: 
  Country: None (occurrence: None)
  Receive Date: 20120312
  Receipt Date: 20120302
  Transmission Date: 20120608
  Serious: Yes (Hospitalization)
  Sender: FDA-Public Use
  Company Number: JP-JNJFOC-20120108765

PATIENT
  Age: 36 Year
  Sex: Female

DRUGS (13)
  1. TRAMADOL HYDROCHLORIDE [Suspect]
     Indication: CANCER PAIN
     Route: 041
  2. TRAMADOL HYDROCHLORIDE [Suspect]
     Route: 041
  3. FENTANYL-100 [Suspect]
     Dosage: FENTANYL (MATRIX PATCH) 50 UG/HR + 25 UG/HR
     Route: 062
  4. FENTANYL CITRATE [Suspect]
     Indication: CANCER PAIN
     Route: 041
  5. FENTANYL-100 [Suspect]
     Indication: CANCER PAIN
     Dosage: 2 PATCHES OF FENTANYL (MATRIX PATCH) 100 UG/HR
     Route: 062
  6. FENTANYL-100 [Suspect]
     Dosage: FENTANYL (MATRIX PATCH) 100 UG/HR + 50 UG/HR
     Route: 062
  7. UNKNOWN MEDICATION [Suspect]
     Indication: CANCER PAIN
     Route: 065
  8. DECADRON [Suspect]
     Indication: CANCER PAIN
     Route: 041
  9. FENTANYL CITRATE [Suspect]
     Route: 041
  10. FENTANYL-100 [Suspect]
     Route: 062
  11. FENTANYL-100 [Suspect]
     Route: 062
  12. CELECOXIB [Suspect]
     Indication: PRODUCT USED FOR UNKNOWN INDICATION
     Route: 048
  13. AMOBAN [Suspect]
     Indication: PRODUCT USED FOR UNKNOWN INDICATION
     Route: 048

REACTIONS (5)
  - CONVULSION [None]
  - LARGE INTESTINAL OBSTRUCTION [None]
  - ABDOMINAL ADHESIONS [None]
  - NAUSEA [None]
  - BREAKTHROUGH PAIN [None]
